FAERS Safety Report 8089110-8 (Version None)
Quarter: 2012Q1

REPORT INFORMATION
  Report Type: 
  Country: None (occurrence: None)
  Receive Date: 20120128
  Receipt Date: 20110627
  Transmission Date: 20120608
  Serious: No
  Sender: FDA-Public Use
  Company Number: US-ABBOTT-11P-163-0834625-00

PATIENT
  Age: 36 Year
  Sex: Female

DRUGS (5)
  1. NABUMETONE [Concomitant]
     Indication: PAIN
     Dosage: 500 MG PRN
  2. FOLIC ACID [Concomitant]
     Indication: PRODUCT USED FOR UNKNOWN INDICATION
     Dosage: 1 MG DAILY
  3. METHOTREXATE [Concomitant]
     Indication: PRODUCT USED FOR UNKNOWN INDICATION
     Dosage: 2.5 MG - 6 TABLETS PER WEEK
  4. HUMIRA [Suspect]
     Indication: RHEUMATOID ARTHRITIS
     Dosage: INITIAL DOSE
     Dates: start: 20110626
  5. VITAMIN D [Concomitant]
     Indication: PRODUCT USED FOR UNKNOWN INDICATION
     Dosage: 50,000 UNITS PER WEEK

REACTIONS (3)
  - MUSCULAR WEAKNESS [None]
  - MOBILITY DECREASED [None]
  - MYALGIA [None]
